FAERS Safety Report 16705413 (Version 1)
Quarter: 2019Q3

REPORT INFORMATION
  Report Type: Spontaneous
  Country: US (occurrence: US)
  Receive Date: 20190815
  Receipt Date: 20190815
  Transmission Date: 20191004
  Serious: No
  Sender: FDA-Public Use
  Company Number: US-GLAXOSMITHKLINE-US2019143677

PATIENT
  Age: 28 Year
  Sex: Female

DRUGS (2)
  1. ABREVA [Suspect]
     Active Substance: DOCOSANOL
     Dosage: UNK(5 TIMES A DAY)
     Dates: start: 20190803, end: 20190805
  2. ABREVA [Suspect]
     Active Substance: DOCOSANOL
     Indication: ORAL HERPES
     Dosage: UNK (5 TIMES A DAY)
     Dates: start: 20190803, end: 20190805

REACTIONS (6)
  - Oral herpes [Unknown]
  - Condition aggravated [Unknown]
  - Lip swelling [Unknown]
  - Rash [Unknown]
  - Wrong technique in product usage process [Unknown]
  - Adverse reaction [Unknown]
